FAERS Safety Report 4867650-X (Version None)
Quarter: 2005Q4

REPORT INFORMATION
  Report Type: 
  Country: None (occurrence: None)
  Receive Date: 20051222
  Receipt Date: 20051108
  Transmission Date: 20060501
  Serious: Yes (Death)
  Sender: FDA-Public Use
  Company Number: MK200512-0308-1

PATIENT
  Age: 77 Year
  Sex: Male

DRUGS (2)
  1. PROPOXYPHENE NAPSYLATE AND ACETAMINOPHEN [Suspect]
     Dosage: PO
     Route: 048
     Dates: start: 20040101
  2. METFORMIN [Suspect]
     Dosage: 1000 MG, PO
     Route: 048
     Dates: start: 20040101

REACTIONS (8)
  - ACIDOSIS [None]
  - BLOOD LACTIC ACID INCREASED [None]
  - BRADYCARDIA [None]
  - HYPOTENSION [None]
  - LOSS OF CONSCIOUSNESS [None]
  - OSMOLAR GAP ABNORMAL [None]
  - OVERDOSE [None]
  - SOMNOLENCE [None]
